FAERS Safety Report 11146916 (Version 1)
Quarter: 2015Q2

REPORT INFORMATION
  Report Type: Other
  Country: US (occurrence: US)
  Receive Date: 20150528
  Receipt Date: 20150528
  Transmission Date: 20150821
  Serious: Yes (Congenital Anomaly, Other)
  Sender: FDA-Public Use
  Company Number: US-FRI-1000076903

PATIENT
  Sex: Female
  Weight: 2.21 kg

DRUGS (5)
  1. LEVOTHROID [Suspect]
     Active Substance: LEVOTHYROXINE SODIUM
     Route: 064
  2. LEVOTHROID [Suspect]
     Active Substance: LEVOTHYROXINE SODIUM
     Route: 065
  3. PROPYLTHIOURACIL. [Suspect]
     Active Substance: PROPYLTHIOURACIL
     Indication: HYPERTHYROIDISM
     Dosage: 200 MG
     Route: 064
  4. PROPYLTHIOURACIL. [Suspect]
     Active Substance: PROPYLTHIOURACIL
     Dosage: 600 MG
     Route: 064
  5. PROPYLTHIOURACIL. [Suspect]
     Active Substance: PROPYLTHIOURACIL
     Dosage: 250 MG
     Route: 064

REACTIONS (11)
  - Congenital pulmonary hypertension [Recovered/Resolved]
  - Dyskinesia [Recovered/Resolved]
  - Exophthalmos congenital [Unknown]
  - Congenital hypothyroidism [Unknown]
  - Goitre [Not Recovered/Not Resolved]
  - Hepatosplenomegaly neonatal [Unknown]
  - Basedow^s disease [Unknown]
  - Tachycardia foetal [Unknown]
  - Epiphyseal disorder [Unknown]
  - Congestive cardiomyopathy [Recovered/Resolved]
  - Neonatal thyrotoxicosis [Unknown]
